FAERS Safety Report 9183537 (Version 1)
Quarter: 2013Q1

REPORT INFORMATION
  Report Type: Spontaneous
  Country: US (occurrence: US)
  Receive Date: 20130322
  Receipt Date: 20130322
  Transmission Date: 20140127
  Serious: No
  Sender: FDA-Public Use
  Company Number: US-BRISTOL-MYERS SQUIBB COMPANY-16443848

PATIENT
  Age: 73 Year
  Sex: Female
  Weight: 108.84 kg

DRUGS (1)
  1. ERBITUX [Suspect]
     Indication: COLON CANCER
     Dosage: FOR ABOUT 3 WEEKS.

REACTIONS (4)
  - Diarrhoea [Unknown]
  - Acne [Unknown]
  - Rash [Unknown]
  - Alopecia [Unknown]
